FAERS Safety Report 14524661 (Version 1)
Quarter: 2018Q1

REPORT INFORMATION
  Report Type: Spontaneous
  Country: US (occurrence: US)
  Receive Date: 20180210
  Receipt Date: 20180210
  Transmission Date: 20180509
  Serious: No
  Sender: FDA-Public Use
  Company Number: None

PATIENT
  Sex: Female

DRUGS (2)
  1. SUTENT [Suspect]
     Active Substance: SUNITINIB MALATE
     Indication: METASTASES TO GASTROINTESTINAL TRACT
     Route: 048
     Dates: start: 20171124
  2. SUTENT [Suspect]
     Active Substance: SUNITINIB MALATE
     Indication: RENAL CANCER
     Route: 048
     Dates: start: 20171124

REACTIONS (6)
  - Blood glucose decreased [None]
  - Stomatitis [None]
  - Abdominal discomfort [None]
  - Diabetes mellitus [None]
  - Oral pain [None]
  - Fatigue [None]
